FAERS Safety Report 7372326-3 (Version None)
Quarter: 2011Q1

REPORT INFORMATION
  Report Type: 
  Country: None (occurrence: None)
  Receive Date: 20110324
  Receipt Date: 20110314
  Transmission Date: 20110831
  Serious: Yes (Other)
  Sender: FDA-Public Use
  Company Number: B0706067A

PATIENT
  Age: 33 Year
  Sex: Male

DRUGS (1)
  1. SERETIDE [Suspect]
     Route: 055

REACTIONS (2)
  - TREATMENT NONCOMPLIANCE [None]
  - OSTEONECROSIS [None]
